FAERS Safety Report 9744578 (Version 2)
Quarter: 2013Q4

REPORT INFORMATION
  Report Type: Other
  Country: US (occurrence: US)
  Receive Date: 20131210
  Receipt Date: 20131210
  Transmission Date: 20140711
  Serious: Yes (Hospitalization, Other)
  Sender: FDA-Public Use
  Company Number: US-ACORDA-ACO_38429_2013

PATIENT
  Age: 37 Year
  Sex: Female

DRUGS (10)
  1. AMPYRA [Suspect]
     Indication: MULTIPLE SCLEROSIS
     Dosage: 10 MG, BID
     Route: 048
     Dates: start: 20100603, end: 201212
  2. BACLOFEN [Concomitant]
     Indication: PRODUCT USED FOR UNKNOWN INDICATION
     Dosage: UNK,UNK
     Route: 065
  3. VALIUM [Concomitant]
     Indication: PRODUCT USED FOR UNKNOWN INDICATION
     Dosage: UNK,UNK
     Route: 065
  4. DDAVP [Concomitant]
     Indication: POLLAKIURIA
     Dosage: UNK,UNK
     Route: 065
  5. TYSABRI [Concomitant]
     Indication: MULTIPLE SCLEROSIS
     Dosage: UNK,UNK
     Route: 065
  6. CYMBALTA [Concomitant]
     Indication: DEPRESSION
     Dosage: UNK, QD
     Route: 065
  7. LEXAPRO [Concomitant]
     Indication: DEPRESSION
     Dosage: UNK, QD
     Route: 065
  8. PERCOCET [Concomitant]
     Indication: BACK PAIN
     Dosage: UNK,UNK
     Route: 065
  9. PERCOCET [Concomitant]
     Indication: SCOLIOSIS
  10. MARIJUANA [Concomitant]
     Indication: PRODUCT USED FOR UNKNOWN INDICATION
     Dosage: UNK,UNK
     Route: 065

REACTIONS (2)
  - Convulsion [Recovered/Resolved]
  - Drug ineffective [None]
